FAERS Safety Report 5263603-0 (Version None)
Quarter: 2007Q1

REPORT INFORMATION
  Report Type: 
  Country: None (occurrence: None)
  Receive Date: 20070313
  Receipt Date: 20070301
  Transmission Date: 20070707
  Serious: Yes (Death, Hospitalization)
  Sender: FDA-Public Use
  Company Number: SE-ROCHE-483793

PATIENT
  Age: 67 Year
  Sex: Male

DRUGS (5)
  1. CYMEVENE [Suspect]
     Indication: DRUG USE FOR UNKNOWN INDICATION
     Dosage: FORM REPORTED AS POWDER FOR SOLUTION FOR INFUSION.
     Route: 065
  2. MABTHERA [Concomitant]
  3. PROGRAF [Concomitant]
  4. FRAGMIN [Concomitant]
  5. MERONEM [Concomitant]

REACTIONS (3)
  - HYPOTENSION [None]
  - MULTI-ORGAN FAILURE [None]
  - SEPSIS [None]
